FAERS Safety Report 16236450 (Version 2)
Quarter: 2019Q3

REPORT INFORMATION
  Report Type: Spontaneous
  Country: JP (occurrence: JP)
  Receive Date: 20190425
  Receipt Date: 20190809
  Transmission Date: 20191004
  Serious: Yes (Other)
  Sender: FDA-Public Use
  Company Number: JP-SA-2019SA113272

PATIENT
  Age: 47 Year
  Sex: Male

DRUGS (3)
  1. ELPLAT [Suspect]
     Active Substance: OXALIPLATIN
     Dosage: UNK UNK, QD
  2. BEVACIZUMAB. [Suspect]
     Active Substance: BEVACIZUMAB
  3. FLUOROURACIL. [Suspect]
     Active Substance: FLUOROURACIL

REACTIONS (1)
  - Anastomotic fistula [Recovering/Resolving]
